FAERS Safety Report 19212266 (Version 2)
Quarter: 2021Q2

REPORT INFORMATION
  Report Type: Report from Study
  Country: FR (occurrence: FR)
  Receive Date: 20210504
  Receipt Date: 20210517
  Transmission Date: 20210717
  Serious: Yes (Hospitalization, Other)
  Sender: FDA-Public Use
  Company Number: FR-B.I. PHARMACEUTICALS,INC./RIDGEFIELD-2021-BI-099474

PATIENT
  Age: 66 Year
  Sex: Male
  Weight: 97 kg

DRUGS (7)
  1. ESCITALOPRAM [Concomitant]
     Active Substance: ESCITALOPRAM OXALATE
     Indication: DEPRESSION
     Route: 048
     Dates: start: 20210128
  2. NINTEDANIB [Suspect]
     Active Substance: NINTEDANIB
     Indication: PULMONARY FIBROSIS
  3. ALPRAZOLAM. [Concomitant]
     Active Substance: ALPRAZOLAM
     Indication: ILLNESS ANXIETY DISORDER
     Route: 048
     Dates: start: 20201206
  4. NINTEDANIB [Suspect]
     Active Substance: NINTEDANIB
     Indication: INTERSTITIAL LUNG DISEASE
     Route: 048
     Dates: start: 20201110
  5. CANDESARTAN CILEXETIL. [Concomitant]
     Active Substance: CANDESARTAN CILEXETIL
     Indication: HYPERTENSION
     Route: 048
     Dates: start: 20170101
  6. OMEPRAZOLE. [Concomitant]
     Active Substance: OMEPRAZOLE
     Indication: NAUSEA
     Route: 048
     Dates: start: 20210118
  7. ACETYLCYSTEINE. [Concomitant]
     Active Substance: ACETYLCYSTEINE
     Indication: BRONCHIAL DISORDER
     Route: 048
     Dates: start: 20210128

REACTIONS (1)
  - Pulmonary embolism [Recovered/Resolved]

NARRATIVE: CASE EVENT DATE: 20210416
